FAERS Safety Report 4646453-5 (Version None)
Quarter: 2005Q2

REPORT INFORMATION
  Report Type: 
  Country: None (occurrence: None)
  Receive Date: 20050427
  Receipt Date: 20040315
  Transmission Date: 20051028
  Serious: No
  Sender: FDA-Public Use
  Company Number: US-GLAXOSMITHKLINE-A0502883A

PATIENT
  Age: 42 Year
  Sex: Female

DRUGS (2)
  1. FLOVENT [Suspect]
     Indication: EMPHYSEMA
     Dosage: 2PUFF TWICE PER DAY
     Route: 055
     Dates: start: 19990101
  2. SEREVENT [Suspect]
     Dosage: 2PUFF TWICE PER DAY
     Route: 055
     Dates: start: 19990101, end: 19990101

REACTIONS (3)
  - FEELING JITTERY [None]
  - MUSCLE SPASMS [None]
  - PALPITATIONS [None]
